FAERS Safety Report 16850720 (Version 1)
Quarter: 2019Q3

REPORT INFORMATION
  Report Type: Spontaneous
  Country: US (occurrence: US)
  Receive Date: 20190925
  Receipt Date: 20190925
  Transmission Date: 20191005
  Serious: No
  Sender: FDA-Public Use
  Company Number: US-THERAPEUTICSMD-2019TMD01851

PATIENT
  Age: 51 Year
  Sex: Female
  Weight: 63.95 kg

DRUGS (6)
  1. UNSPECIFIED PAIN PILLS [Concomitant]
     Active Substance: UNSPECIFIED INGREDIENT
  2. IMVEXXY [Suspect]
     Active Substance: ESTRADIOL
     Indication: FEMALE SEXUAL DYSFUNCTION
     Dosage: 10 ?G, SOMETIMES JUST BEFORE BED, USUALLY INSERTS IT THEN WATCHES TV
     Route: 067
     Dates: start: 201905, end: 2019
  3. IMVEXXY [Suspect]
     Active Substance: ESTRADIOL
     Dosage: 10 ?G, 2X/WEEK SOMETIMES JUST BEFORE BED ON MONDAYS AND THURSDAYS
     Route: 067
     Dates: start: 2019
  4. MOBIC [Concomitant]
     Active Substance: MELOXICAM
  5. UNSPECIFIED MUSCLE RELAXANTS [Concomitant]
     Active Substance: UNSPECIFIED INGREDIENT
     Dosage: UNK, AS NEEDED
  6. VALIUM [Concomitant]
     Active Substance: DIAZEPAM

REACTIONS (3)
  - Middle insomnia [Recovering/Resolving]
  - Heart rate increased [Recovering/Resolving]
  - Off label use [Not Recovered/Not Resolved]

NARRATIVE: CASE EVENT DATE: 201905
